FAERS Safety Report 23880785 (Version 1)
Quarter: 2024Q2

REPORT INFORMATION
  Report Type: Spontaneous
  Country: US (occurrence: None)
  Receive Date: 20240521
  Receipt Date: 20240521
  Transmission Date: 20240716
  Serious: Yes (Hospitalization)
  Sender: FDA-Public Use
  Company Number: None

PATIENT
  Age: 60 Year
  Sex: Male

DRUGS (1)
  1. METHOTREXATE SODIUM [Suspect]
     Active Substance: METHOTREXATE SODIUM
     Indication: Rash
     Dates: start: 20240424, end: 20240430

REACTIONS (4)
  - Rash [None]
  - Inappropriate schedule of product administration [None]
  - Toxicity to various agents [None]
  - SJS-TEN overlap [None]

NARRATIVE: CASE EVENT DATE: 20240430
